FAERS Safety Report 24844189 (Version 2)
Quarter: 2025Q1

REPORT INFORMATION
  Report Type: Spontaneous
  Country: US (occurrence: US)
  Receive Date: 20250115
  Receipt Date: 20250120
  Transmission Date: 20250409
  Serious: Yes (Other)
  Sender: AUROBINDO
  Company Number: US-MLMSERVICE-20241226-PI326009-00218-1

PATIENT
  Age: 61 Year
  Sex: Female

DRUGS (1)
  1. METHOTREXATE [Suspect]
     Active Substance: METHOTREXATE
     Indication: Crohn^s disease
     Route: 065

REACTIONS (8)
  - Hepatic cirrhosis [Unknown]
  - Stoma site haemorrhage [Unknown]
  - Adenocarcinoma pancreas [Unknown]
  - Acute kidney injury [Unknown]
  - Coagulopathy [Unknown]
  - Thrombocytopenia [Unknown]
  - Anaemia [Unknown]
  - Troponin increased [Unknown]
